FAERS Safety Report 7810521-7 (Version None)
Quarter: 2011Q4

REPORT INFORMATION
  Report Type: 
  Country: None (occurrence: None)
  Receive Date: 20111013
  Receipt Date: 20110927
  Transmission Date: 20120403
  Serious: Yes (Other)
  Sender: FDA-Public Use
  Company Number: AU-ROCHE-1000615

PATIENT
  Sex: Female

DRUGS (2)
  1. PACLITAXEL [Concomitant]
  2. HERCEPTIN [Suspect]
     Indication: METASTATIC NEOPLASM

REACTIONS (2)
  - DISEASE PROGRESSION [None]
  - METASTASES TO CENTRAL NERVOUS SYSTEM [None]
